FAERS Safety Report 9380379 (Version 1)
Quarter: 2013Q3

REPORT INFORMATION
  Report Type: Spontaneous
  Country: US (occurrence: US)
  Receive Date: 20130702
  Receipt Date: 20130702
  Transmission Date: 20140515
  Serious: Yes (Other)
  Sender: FDA-Public Use
  Company Number: US-BRISTOL-MYERS SQUIBB COMPANY-19033646

PATIENT
  Age: 54 Year
  Sex: Female
  Weight: 60 kg

DRUGS (9)
  1. ABILIFY [Suspect]
  2. PLAVIX [Suspect]
     Indication: CORONARY ARTERY DISEASE
  3. METOPROLOL [Concomitant]
  4. BUPROPION [Concomitant]
  5. PROZAC [Concomitant]
  6. METHYLPHENIDATE [Concomitant]
  7. TOPAMAX [Concomitant]
  8. VASOTEC [Concomitant]
  9. SIMVASTATIN [Concomitant]

REACTIONS (3)
  - Renal failure [Unknown]
  - White blood cell count decreased [Unknown]
  - Anaemia [Unknown]
